FAERS Safety Report 18629399 (Version 1)
Quarter: 2020Q4

REPORT INFORMATION
  Report Type: Spontaneous
  Country: GB (occurrence: GB)
  Receive Date: 20201217
  Receipt Date: 20201217
  Transmission Date: 20210114
  Serious: Yes (Other)
  Sender: FDA-Public Use
  Company Number: GB-ASTRAZENECA-2016SE79589

PATIENT
  Sex: Female

DRUGS (1)
  1. CRESTOR [Suspect]
     Active Substance: ROSUVASTATIN CALCIUM
     Route: 048

REACTIONS (5)
  - Glycosylated haemoglobin increased [Unknown]
  - Glucose tolerance impaired [Unknown]
  - Hypertrophic cardiomyopathy [Unknown]
  - Psittacosis [Unknown]
  - Blood glucose increased [Unknown]
